FAERS Safety Report 8346959-1 (Version None)
Quarter: 2012Q2

REPORT INFORMATION
  Report Type: 
  Country: None (occurrence: None)
  Receive Date: 20120509
  Receipt Date: 20120427
  Transmission Date: 20120825
  Serious: Yes (Hospitalization)
  Sender: FDA-Public Use
  Company Number: BE-TEVA-331461ISR

PATIENT
  Age: 66 Year
  Sex: Female

DRUGS (23)
  1. ATACAND [Concomitant]
     Indication: HYPERTENSION
     Dates: start: 20050613
  2. OLAMINE (PIROCTONE ETHANOLAMINE) [Concomitant]
     Indication: DANDRUFF
     Dates: start: 20101208
  3. BICARBONATE BUCCAL = MOUTH WASH [Concomitant]
     Indication: MUCOSAL INFLAMMATION
     Route: 002
     Dates: start: 20120313
  4. MOTILIUM [Concomitant]
     Indication: NAUSEA
     Dates: start: 20120311
  5. MAGNESIUM SULFATE [Concomitant]
     Indication: HYPOMAGNESAEMIA
     Dates: start: 20120323, end: 20120326
  6. CISPLATIN [Suspect]
     Route: 041
     Dates: start: 20120326
  7. BAREXAL [Concomitant]
     Indication: DIARRHOEA
     Dates: start: 20120305
  8. MORPHINE [Concomitant]
     Indication: PAIN
     Dates: start: 20120313
  9. MOVIPREP [Concomitant]
     Indication: CONSTIPATION
     Dates: start: 20120313
  10. CISPLATIN [Suspect]
     Indication: METASTATIC GASTRIC CANCER
     Dosage: CURRENT CYCLE 1, 80 MG/M^2
     Route: 041
     Dates: start: 20120305, end: 20120305
  11. IMODIUM [Concomitant]
     Indication: DIARRHOEA
     Dates: start: 20120312, end: 20120313
  12. ACETAMINOPHEN [Concomitant]
     Indication: HEADACHE
     Dates: start: 20120309
  13. ORTHO-GYNEST [Concomitant]
     Indication: OOPHORECTOMY
     Dates: start: 20110307
  14. NEUROBION [Concomitant]
     Indication: GASTRECTOMY
     Dates: start: 20100330
  15. ZANTAC [Concomitant]
     Indication: DYSPEPSIA
     Dates: start: 20120312, end: 20120313
  16. LITICAN [Concomitant]
     Indication: NAUSEA
     Dates: start: 20120311
  17. FLUOROURACIL [Suspect]
     Indication: METASTATIC GASTRIC CANCER
     Dosage: CURRENT CYCLE 1, 800 MG/M^2/DAY
     Route: 041
     Dates: start: 20120305, end: 20120310
  18. SOFTENE [Concomitant]
     Indication: CONSTIPATION
     Dates: start: 20120315
  19. FLUOROURACIL [Suspect]
     Route: 041
     Dates: start: 20120326
  20. BLOOD TRANSFUSION [Concomitant]
     Indication: ANAEMIA
     Dates: start: 20120320, end: 20120321
  21. TRAMADOL HCL [Concomitant]
     Indication: ABDOMINAL PAIN
     Dates: start: 20120312, end: 20120314
  22. SYNGEL [Concomitant]
     Indication: ABDOMINAL PAIN UPPER
     Dates: start: 20120314
  23. VITAMIN-MINERAL COMPOUND TAB [Concomitant]
     Indication: PROPHYLAXIS

REACTIONS (5)
  - FEBRILE NEUTROPENIA [None]
  - HYPOKALAEMIA [None]
  - DECREASED APPETITE [None]
  - PYREXIA [None]
  - NEUTROPENIA [None]
